FAERS Safety Report 8972201 (Version 1)
Quarter: 2012Q4

REPORT INFORMATION
  Report Type: 
  Country: GB (occurrence: GB)
  Receive Date: 20121219
  Receipt Date: 20121219
  Transmission Date: 20130627
  Serious: Yes (Hospitalization)
  Sender: FDA-Public Use
  Company Number: GB-PFIZER INC-2012317923

PATIENT
  Age: 81 Year
  Sex: Male

DRUGS (17)
  1. AMOXICILLIN\CLAVULANATE POTASSIUM [Suspect]
     Indication: UTI
     Dosage: 625 mg, UNK
     Route: 048
     Dates: start: 20121128, end: 20121130
  2. TAZOCIN [Suspect]
     Indication: SEPSIS
     Dosage: 4.5 g, 3x/day
     Route: 042
     Dates: start: 20121130, end: 20121203
  3. OMEPRAZOLE [Concomitant]
     Indication: DRUG USE FOR UNKNOWN INDICATION
     Dosage: 20 mg, 1x/day
     Route: 065
  4. PARACETAMOL [Concomitant]
     Dosage: 500mg-1g, four times a day
     Route: 065
  5. SALBUTAMOL [Concomitant]
     Dosage: 100 ug, as needed
     Route: 065
  6. SIMVASTATIN [Concomitant]
     Dosage: At night
     Route: 065
  7. LATANOPROST [Concomitant]
     Dosage: 1 drop in both eyes once at night
     Route: 050
  8. PREGABALIN [Concomitant]
     Dosage: 300 mg, 2x/day
     Route: 065
  9. CARBAMAZEPINE [Concomitant]
     Dosage: 200 mg, 2x/day
     Route: 065
  10. TIOTROPIUM [Concomitant]
     Dosage: 18 ug, 1x/day
     Route: 065
  11. WARFARIN [Concomitant]
     Dosage: UNK
     Route: 065
  12. RAMIPRIL [Concomitant]
     Dosage: 10 mg, 1x/day
     Route: 065
  13. BISOPROLOL [Concomitant]
     Dosage: 10 mg, 1x/day
     Route: 065
  14. SERETIDE [Concomitant]
     Dosage: 1 puff twice daily
     Route: 055
  15. DIGOXIN [Concomitant]
     Dosage: 125 ug, 1x/day
     Route: 065
  16. FUROSEMIDE SODIUM [Concomitant]
     Dosage: 40 mg, 1x/day (In the morning)
     Route: 065
  17. CEFALEXIN [Concomitant]
     Indication: UTI
     Dosage: 500 mg, 3x/day
     Route: 065
     Dates: start: 20121126

REACTIONS (8)
  - Toxic encephalopathy [Recovering/Resolving]
  - Confusional state [Recovering/Resolving]
  - Pain [Unknown]
  - Pyrexia [Unknown]
  - Communication disorder [Recovering/Resolving]
  - Depressed level of consciousness [Recovering/Resolving]
  - Hyperaesthesia [Unknown]
  - Rash [Unknown]
